FAERS Safety Report 15982257 (Version 2)
Quarter: 2019Q1

REPORT INFORMATION
  Report Type: Spontaneous
  Country: FR (occurrence: FR)
  Receive Date: 20190219
  Receipt Date: 20190306
  Transmission Date: 20190418
  Serious: Yes (Life-Threatening, Hospitalization, Other)
  Sender: FDA-Public Use
  Company Number: FR-GILEAD-2003-06494

PATIENT
  Age: 43 Year
  Sex: Female
  Weight: 74 kg

DRUGS (4)
  1. SUSTIVA [Suspect]
     Active Substance: EFAVIRENZ
     Indication: HIV INFECTION
     Dosage: 600 MG, QD
     Route: 048
     Dates: start: 20030412, end: 20030728
  2. VIREAD [Suspect]
     Active Substance: TENOFOVIR DISOPROXIL FUMARATE
     Indication: HIV INFECTION
     Dosage: 245 MG, QD
     Route: 048
     Dates: start: 20030412, end: 20030728
  3. EPIVIR [Suspect]
     Active Substance: LAMIVUDINE
     Indication: HIV INFECTION
     Dosage: 300 MG, QD
     Route: 048
     Dates: start: 20030412, end: 20030728
  4. VIDEX [Suspect]
     Active Substance: DIDANOSINE
     Indication: HIV INFECTION
     Dosage: 400 MG, QD
     Route: 048
     Dates: start: 20030412, end: 20030728

REACTIONS (8)
  - Hepatitis A [Recovered/Resolved]
  - Peritoneal haematoma [Recovered/Resolved]
  - Ascites [Recovered/Resolved]
  - Aggression [Unknown]
  - Somnolence [Unknown]
  - Hepatic necrosis [Recovered/Resolved]
  - Jaundice [Recovered/Resolved]
  - Vomiting [Unknown]

NARRATIVE: CASE EVENT DATE: 20030725
